FAERS Safety Report 18497665 (Version 3)
Quarter: 2021Q1

REPORT INFORMATION
  Report Type: Spontaneous
  Country: US (occurrence: US)
  Receive Date: 20201112
  Receipt Date: 20210114
  Transmission Date: 20210419
  Serious: Yes (Other)
  Sender: FDA-Public Use
  Company Number: US-TEVA-2020-US-1847561

PATIENT
  Sex: Male

DRUGS (2)
  1. FENTANYL. [Suspect]
     Active Substance: FENTANYL
     Indication: BACK PAIN
     Route: 065
     Dates: start: 2000, end: 2001
  2. FENTANYL. [Suspect]
     Active Substance: FENTANYL
     Indication: BACK INJURY

REACTIONS (4)
  - Injury [Unknown]
  - Impaired work ability [Unknown]
  - Dependence [Unknown]
  - Road traffic accident [Not Recovered/Not Resolved]
